FAERS Safety Report 23334850 (Version 1)
Quarter: 2023Q4

REPORT INFORMATION
  Report Type: Spontaneous
  Country: IR (occurrence: IR)
  Receive Date: 20231224
  Receipt Date: 20231224
  Transmission Date: 20240110
  Serious: Yes (Death, Other)
  Sender: FDA-Public Use
  Company Number: IR-AMGEN-IRNSP2023226519

PATIENT
  Age: 64 Year
  Sex: Female

DRUGS (13)
  1. FILGRASTIM [Suspect]
     Active Substance: FILGRASTIM
     Indication: Pancytopenia
     Dosage: 300 MICROGRAM, BID
     Route: 065
  2. FILGRASTIM [Suspect]
     Active Substance: FILGRASTIM
     Indication: Off label use
  3. VANCOMYCIN [Concomitant]
     Active Substance: VANCOMYCIN
     Dosage: 1000 MILLIGRAM, BID
     Route: 065
  4. MEROPENEM [Concomitant]
     Active Substance: MEROPENEM
     Dosage: 1000 MILLIGRAM, TID
     Route: 065
  5. FLUCONAZOLE [Concomitant]
     Active Substance: FLUCONAZOLE
     Dosage: 100 MILLIGRAM, BID
     Route: 065
  6. LEUCOVORIN [Concomitant]
     Active Substance: LEUCOVORIN\LEUCOVORIN CALCIUM
     Dosage: 50 MILLIGRAM, QID
     Route: 065
  7. HYDROCORTISONE [Concomitant]
     Active Substance: HYDROCORTISONE
     Dosage: 100 MILLIGRAM, Q8H
     Route: 065
  8. ALUMINUM HYDROXIDE [Concomitant]
     Active Substance: ALUMINUM HYDROXIDE
     Dosage: UNK
     Route: 065
  9. DIPHENHYDRAMINE [Concomitant]
     Active Substance: DIPHENHYDRAMINE
     Dosage: UNK
     Route: 065
  10. LIDOCAINE [Concomitant]
     Active Substance: LIDOCAINE
     Dosage: UNK
     Route: 065
  11. NYSTATIN [Concomitant]
     Active Substance: NYSTATIN
     Dosage: UNK
     Route: 065
  12. LOSARTAN [Concomitant]
     Active Substance: LOSARTAN
     Indication: Hypertension
     Dosage: 25 MILLIGRAM, BID
     Route: 065
  13. ATORVASTATIN [Concomitant]
     Active Substance: ATORVASTATIN
     Indication: Dyslipidaemia
     Dosage: 20 MILLIGRAM, QD
     Route: 065

REACTIONS (5)
  - Septic shock [Fatal]
  - Depressed level of consciousness [Unknown]
  - Off label use [Unknown]
  - Haemodynamic instability [Unknown]
  - Drug ineffective for unapproved indication [Unknown]
